FAERS Safety Report 4280759-7 (Version None)
Quarter: 2004Q1

REPORT INFORMATION
  Report Type: 
  Country: None (occurrence: None)
  Receive Date: 20040127
  Receipt Date: 20040119
  Transmission Date: 20041129
  Serious: Yes (Hospitalization)
  Sender: FDA-Public Use
  Company Number: 031001-PM0140-01

PATIENT
  Age: 22 Year
  Sex: Male

DRUGS (4)
  1. TRANXENE [Suspect]
     Indication: INTENTIONAL OVERDOSE
     Dosage: 200 MG, ONCE, ORAL
     Route: 048
     Dates: start: 20030911, end: 20030911
  2. NERVIFENE (CHLORAL HYDRATE) [Suspect]
     Indication: INTENTIONAL OVERDOSE
     Dosage: 12500 MG, ONCE, ORAL
     Route: 048
     Dates: start: 20030911, end: 20030911
  3. TOLPERISONE HYDROCHLORIDE [Suspect]
     Indication: INTENTIONAL OVERDOSE
     Dosage: 4500 MG, ONCE, ORAL
     Route: 048
     Dates: start: 20030911, end: 20030911
  4. IMOVANE (ZOPLICONE) [Suspect]
     Indication: INTENTIONAL OVERDOSE
     Dosage: 75 MG, ONCE, ORAL
     Route: 048
     Dates: start: 20030911, end: 20030911

REACTIONS (4)
  - CARDIAC ARREST [None]
  - INTENTIONAL OVERDOSE [None]
  - SOMNOLENCE [None]
  - VOMITING [None]
